FAERS Safety Report 16729961 (Version 1)
Quarter: 2019Q3

REPORT INFORMATION
  Report Type: Spontaneous
  Country: US (occurrence: US)
  Receive Date: 20190821
  Receipt Date: 20190821
  Transmission Date: 20191005
  Serious: Yes (Hospitalization)
  Sender: FDA-Public Use
  Company Number: None

PATIENT
  Age: 32 Year
  Sex: Female
  Weight: 62.55 kg

DRUGS (1)
  1. HAWAIIAN TROPIC (AVOBENZONE\OCTOCRYLENE\OXYBENZONE) [Suspect]
     Active Substance: AVOBENZONE\OCTOCRYLENE\OXYBENZONE
     Indication: PROPHYLAXIS
     Dosage: ?          OTHER STRENGTH:SPF;?
     Route: 061
     Dates: start: 20190818, end: 20190819

REACTIONS (5)
  - Application site erythema [None]
  - Application site inflammation [None]
  - Application site rash [None]
  - Throat tightness [None]
  - Application site swelling [None]

NARRATIVE: CASE EVENT DATE: 20190818
